FAERS Safety Report 5643076-6 (Version None)
Quarter: 2008Q1

REPORT INFORMATION
  Report Type: 
  Country: None (occurrence: None)
  Receive Date: 20080226
  Receipt Date: 20080219
  Transmission Date: 20080703
  Serious: Yes (Hospitalization)
  Sender: FDA-Public Use
  Company Number: 2007SP024569

PATIENT
  Age: 79 Year
  Sex: Male
  Weight: 63 kg

DRUGS (7)
  1. CELESTAMINE TAB [Suspect]
     Indication: DERMATITIS EXFOLIATIVE
     Dosage: 1 DF; PO
     Route: 048
     Dates: start: 20070206, end: 20070421
  2. FLAVOXATE HYDROCHLORIDE [Suspect]
     Indication: DYSURIA
     Dosage: 200 MG; PO
     Route: 048
     Dates: start: 20070322, end: 20070421
  3. ECLAR TORII (DEPRODONE PROPIONATE) [Suspect]
     Indication: DERMATITIS EXFOLIATIVE
     Dosage: TOP
     Route: 061
     Dates: start: 20070201, end: 20070422
  4. NU-LOTAN [Concomitant]
  5. ZYRTEC [Concomitant]
  6. HIRUDOID [Concomitant]
  7. HYALEIN [Concomitant]

REACTIONS (9)
  - ADRENAL INSUFFICIENCY [None]
  - CYTOMEGALOVIRUS ANTIGEN POSITIVE [None]
  - DYSURIA [None]
  - HEPATITIS ACUTE [None]
  - HYPONATRAEMIA [None]
  - LIVER DISORDER [None]
  - LYMPHOCYTE STIMULATION TEST POSITIVE [None]
  - LYMPHOCYTIC INFILTRATION [None]
  - VIRAL INFECTION [None]
